FAERS Safety Report 9465060 (Version 3)
Quarter: 2014Q3

REPORT INFORMATION
  Report Type: Spontaneous
  Country: US (occurrence: US)
  Receive Date: 20130819
  Receipt Date: 20140725
  Transmission Date: 20150326
  Serious: Yes (Hospitalization, Other)
  Sender: FDA-Public Use
  Company Number: US-009507513-1308USA008284

PATIENT
  Sex: Female
  Weight: 67.57 kg

DRUGS (1)
  1. NUVARING [Suspect]
     Active Substance: ETHINYL ESTRADIOL\ETONOGESTREL
     Indication: CONTRACEPTION
     Dosage: 1 RING,REMOVE AFTER 3 WEEKS
     Route: 067
     Dates: start: 20041020, end: 20090818

REACTIONS (11)
  - Hypothyroidism [Unknown]
  - Urinary tract infection [Unknown]
  - Back pain [Unknown]
  - Unintended pregnancy [Unknown]
  - Maternal exposure before pregnancy [Unknown]
  - Migraine [Unknown]
  - Menstrual disorder [Unknown]
  - Goitre [Unknown]
  - Dyslipidaemia [Unknown]
  - Sickle cell anaemia [Unknown]
  - Cerebrovascular accident [Unknown]

NARRATIVE: CASE EVENT DATE: 200609
